FAERS Safety Report 18991029 (Version 2)
Quarter: 2021Q2

REPORT INFORMATION
  Report Type: Report from Study
  Country: US (occurrence: US)
  Receive Date: 20210310
  Receipt Date: 20210526
  Transmission Date: 20210717
  Serious: Yes (Other)
  Sender: FDA-Public Use
  Company Number: US-JNJFOC-20210308755

PATIENT
  Age: 85 Year
  Sex: Female
  Weight: 113.2 kg

DRUGS (2)
  1. UPTRAVI [Suspect]
     Active Substance: SELEXIPAG
     Indication: PULMONARY ARTERIAL HYPERTENSION
     Route: 048
  2. REVATIO [Concomitant]
     Active Substance: SILDENAFIL CITRATE

REACTIONS (9)
  - Sciatica [Unknown]
  - Mitral valve prolapse [Unknown]
  - Nerve compression [Unknown]
  - Syncope [Unknown]
  - Neuropathy peripheral [Unknown]
  - Angina pectoris [Unknown]
  - Asthenia [Unknown]
  - Rotator cuff syndrome [Unknown]
  - Blood pressure decreased [Unknown]

NARRATIVE: CASE EVENT DATE: 20210222
